FAERS Safety Report 11615700 (Version 1)
Quarter: 2015Q4

REPORT INFORMATION
  Report Type: Spontaneous
  Country: US (occurrence: None)
  Receive Date: 20151008
  Receipt Date: 20151008
  Transmission Date: 20160304
  Serious: Yes (Other)
  Sender: FDA-Public Use
  Company Number: None

PATIENT
  Age: 14 Month
  Sex: Male

DRUGS (23)
  1. GLYCERIN RECTAL [Concomitant]
  2. PROAIR HFA [Concomitant]
     Active Substance: ALBUTEROL SULFATE
  3. SODIUM CHLORIDE INJECTION [Concomitant]
     Active Substance: SODIUM CHLORIDE
  4. ALDACTONE [Concomitant]
     Active Substance: SPIRONOLACTONE
  5. TRANSDERM-SCOP PATCH [Concomitant]
  6. FOLIC ACID. [Concomitant]
     Active Substance: FOLIC ACID
  7. MULTIVITAMIN [Concomitant]
     Active Substance: VITAMINS
  8. TOBRAMYCIN INH SOLUTION 300MG/5ML AKORN [Suspect]
     Active Substance: TOBRAMYCIN
     Indication: PRODUCT USED FOR UNKNOWN INDICATION
     Route: 055
     Dates: start: 20150918, end: 20151006
  9. BACTRACIN OINTMENT [Concomitant]
  10. DOCUSATE SODIUM. [Concomitant]
     Active Substance: DOCUSATE SODIUM
  11. LIDOCAINE JELLY [Concomitant]
     Active Substance: LIDOCAINE
  12. A AND D [Concomitant]
     Active Substance: DIMETHICONE\PETROLATUM\ZINC OXIDE
  13. AMIDARONE [Concomitant]
     Active Substance: AMIODARONE
  14. IRON [Concomitant]
     Active Substance: IRON
  15. POTASSIUM CHLORIDE. [Concomitant]
     Active Substance: POTASSIUM CHLORIDE
  16. ASPIRIN. [Concomitant]
     Active Substance: ASPIRIN
  17. BUMETANIDE. [Concomitant]
     Active Substance: BUMETANIDE
  18. CAPTOPRIL. [Concomitant]
     Active Substance: CAPTOPRIL
  19. KEPPRA [Concomitant]
     Active Substance: LEVETIRACETAM
  20. LANSOPRAZOLE. [Concomitant]
     Active Substance: LANSOPRAZOLE
  21. BENADRYL [Concomitant]
     Active Substance: DIPHENHYDRAMINE HYDROCHLORIDE
  22. MIRALAX [Concomitant]
     Active Substance: POLYETHYLENE GLYCOL 3350
  23. ACETAMINOPHEN. [Concomitant]
     Active Substance: ACETAMINOPHEN

REACTIONS (1)
  - Tachycardia [None]

NARRATIVE: CASE EVENT DATE: 20150921
